FAERS Safety Report 16903597 (Version 3)
Quarter: 2019Q4

REPORT INFORMATION
  Report Type: Spontaneous
  Country: JP (occurrence: JP)
  Receive Date: 20191010
  Receipt Date: 20191216
  Transmission Date: 20200122
  Serious: No
  Sender: FDA-Public Use
  Company Number: JP-PFIZER INC-2019429395

PATIENT
  Age: 37 Year
  Sex: Female

DRUGS (6)
  1. CEFTRIAXONE SODIUM. [Suspect]
     Active Substance: CEFTRIAXONE SODIUM
     Indication: TYPHOID FEVER
  2. DORIPENEM. [Suspect]
     Active Substance: DORIPENEM
     Indication: ANTIBIOTIC THERAPY
  3. DORIPENEM. [Suspect]
     Active Substance: DORIPENEM
     Indication: SEPSIS
  4. CEFTRIAXONE SODIUM. [Suspect]
     Active Substance: CEFTRIAXONE SODIUM
     Indication: ANTIBIOTIC THERAPY
     Dosage: 2 G, 2X/DAY
  5. DORIPENEM. [Suspect]
     Active Substance: DORIPENEM
     Indication: TYPHOID FEVER
     Dosage: UNK
  6. DORIPENEM. [Suspect]
     Active Substance: DORIPENEM
     Indication: PELVIC INFECTION

REACTIONS (1)
  - Hepatic function abnormal [Recovering/Resolving]
